FAERS Safety Report 4994302-8 (Version None)
Quarter: 2006Q2

REPORT INFORMATION
  Report Type: 
  Country: None (occurrence: None)
  Receive Date: 20060503
  Receipt Date: 20060420
  Transmission Date: 20061013
  Serious: Yes (Other)
  Sender: FDA-Public Use
  Company Number: 2006044306

PATIENT
  Sex: Female

DRUGS (1)
  1. ZITHROMAX [Suspect]
     Indication: TONSILLITIS
     Dates: start: 20050801

REACTIONS (3)
  - ACOUSTIC NEUROMA [None]
  - DEAFNESS UNILATERAL [None]
  - TINNITUS [None]
